FAERS Safety Report 5813416-3 (Version None)
Quarter: 2008Q3

REPORT INFORMATION
  Report Type: 
  Country: None (occurrence: None)
  Receive Date: 20080717
  Receipt Date: 20080708
  Transmission Date: 20090109
  Serious: Yes (Hospitalization)
  Sender: FDA-Public Use
  Company Number: RU-ABBOTT-08P-251-0461952-00

PATIENT
  Age: 4 Year
  Sex: Female

DRUGS (3)
  1. DEPAKENE [Suspect]
     Indication: EPILEPSY
     Route: 048
     Dates: start: 20080101
  2. DEPAKENE [Suspect]
     Indication: EPILEPSY
     Dates: start: 20070101, end: 20080101
  3. LAMOTRIGINE [Concomitant]
     Indication: EPILEPSY
     Dosage: 1 TAB MORNING, 1/4 TAB EVENING
     Route: 048
     Dates: start: 20080101

REACTIONS (5)
  - CONVULSION [None]
  - DRUG LEVEL BELOW THERAPEUTIC [None]
  - ENURESIS [None]
  - PHARMACEUTICAL PRODUCT COUNTERFEIT [None]
  - TREATMENT NONCOMPLIANCE [None]
